FAERS Safety Report 11167380 (Version 1)
Quarter: 2015Q2

REPORT INFORMATION
  Report Type: Spontaneous
  Country: US (occurrence: None)
  Receive Date: 20150603
  Receipt Date: 20150603
  Transmission Date: 20150821
  Serious: No
  Sender: FDA-Public Use
  Company Number: 2015-00049

PATIENT
  Age: 55 Year
  Sex: Female
  Weight: 77.11 kg

DRUGS (2)
  1. ZICAM COLD REMEDY LIQUI-LOZ [Suspect]
     Active Substance: ZINC ACETATE\ZINC GLUCONATE
     Indication: NASOPHARYNGITIS
     Dosage: ORALLY X 2 DAYS
     Route: 048
     Dates: start: 201505
  2. ZICAM COLD REMEDY NASAL SPRAY [Suspect]
     Active Substance: HOMEOPATHICS
     Indication: NASOPHARYNGITIS
     Dosage: NASALLY X 3 DAYS
     Route: 045
     Dates: start: 201505

REACTIONS (5)
  - Ageusia [None]
  - Anosmia [None]
  - Headache [None]
  - Sinusitis [None]
  - Respiratory tract congestion [None]

NARRATIVE: CASE EVENT DATE: 201505
